FAERS Safety Report 5527526-1 (Version None)
Quarter: 2007Q4

REPORT INFORMATION
  Report Type: 
  Country: None (occurrence: None)
  Receive Date: 20071121
  Receipt Date: 20071109
  Transmission Date: 20080405
  Serious: Yes (Other)
  Sender: FDA-Public Use
  Company Number: A0624078A

PATIENT
  Age: 39 Year
  Sex: Female

DRUGS (3)
  1. IMITREX [Suspect]
     Indication: MIGRAINE
     Dosage: SEE DOSAGE TEXT/ ORAL
     Route: 048
  2. IMITREX [Suspect]
     Indication: MIGRAINE
     Dosage: SEE DOSAGE TEXT / INTRAMUSC
     Route: 030
  3. FLUOXETINE HCL [Suspect]
     Indication: DRUG USE FOR UNKNOWN INDICATION

REACTIONS (8)
  - ASTHENIA [None]
  - DRUG INEFFECTIVE [None]
  - HYPERHIDROSIS [None]
  - MANIA [None]
  - ROAD TRAFFIC ACCIDENT [None]
  - SEROTONIN SYNDROME [None]
  - TREMOR [None]
  - WHIPLASH INJURY [None]
